FAERS Safety Report 9489716 (Version 1)
Quarter: 2013Q3

REPORT INFORMATION
  Report Type: Spontaneous
  Country: US (occurrence: US)
  Receive Date: 20130725
  Receipt Date: 20130725
  Transmission Date: 20140515
  Serious: Yes (Hospitalization)
  Sender: FDA-Public Use
  Company Number: US-GLAXOSMITHKLINE-A1002050A

PATIENT
  Age: 53 Year
  Sex: Male

DRUGS (1)
  1. AVANDIA [Suspect]
     Indication: DIABETES MELLITUS
     Route: 048
     Dates: start: 1999, end: 2001

REACTIONS (5)
  - Cardiac failure congestive [Recovering/Resolving]
  - Transient ischaemic attack [Unknown]
  - Chest pain [Unknown]
  - Chest discomfort [Unknown]
  - Cardiac failure [Unknown]
